FAERS Safety Report 5004019-1 (Version None)
Quarter: 2006Q2

REPORT INFORMATION
  Report Type: 
  Country: None (occurrence: None)
  Receive Date: 20060515
  Receipt Date: 20060515
  Transmission Date: 20061013
  Serious: Yes (Hospitalization)
  Sender: FDA-Public Use
  Company Number: None

PATIENT
  Age: 74 Year
  Sex: Female

DRUGS (4)
  1. SODIUM PHOSPHATES [Suspect]
     Indication: COLONOSCOPY
     Dosage: PO
     Route: 048
  2. DIOVAN HCT [Concomitant]
  3. GLIPIZIDE [Concomitant]
  4. TOPROL-XL [Concomitant]

REACTIONS (1)
  - BLOOD CREATININE INCREASED [None]
